FAERS Safety Report 20569015 (Version 6)
Quarter: 2022Q2

REPORT INFORMATION
  Report Type: Spontaneous
  Country: US (occurrence: US)
  Receive Date: 20220308
  Receipt Date: 20220414
  Transmission Date: 20220720
  Serious: Yes (Hospitalization)
  Sender: FDA-Public Use
  Company Number: US-KARYOPHARM-2022KPT000246

PATIENT

DRUGS (26)
  1. XPOVIO [Suspect]
     Active Substance: SELINEXOR
     Indication: Plasma cell myeloma
     Dosage: 100 MG, WEEKLY
     Route: 048
     Dates: start: 20210927, end: 202202
  2. DEXAMETHASONE [Concomitant]
     Active Substance: DEXAMETHASONE
  3. HYDROCHLOROTHIAZIDE [Concomitant]
     Active Substance: HYDROCHLOROTHIAZIDE
  4. LOSARTAN [Concomitant]
     Active Substance: LOSARTAN
  5. LORATADINE [Concomitant]
     Active Substance: LORATADINE
  6. METFORMIN [Concomitant]
     Active Substance: METFORMIN HYDROCHLORIDE
  7. KCL [Concomitant]
     Active Substance: POTASSIUM CHLORIDE
  8. IBUPROFEN [Concomitant]
     Active Substance: IBUPROFEN
  9. AMOXICILLIN [Concomitant]
     Active Substance: AMOXICILLIN
  10. OXYCODONE [Concomitant]
     Active Substance: OXYCODONE
  11. AMLODIPINE [Concomitant]
     Active Substance: AMLODIPINE BESYLATE
  12. AZITHROMYCIN [Concomitant]
     Active Substance: AZITHROMYCIN
  13. DIAZEPAM [Concomitant]
     Active Substance: DIAZEPAM
  14. FENTANYL [Concomitant]
     Active Substance: FENTANYL
  15. FLUCONAZOLE [Concomitant]
     Active Substance: FLUCONAZOLE
  16. FLUTICASONE [Concomitant]
     Active Substance: FLUTICASONE
  17. GABAPENTIN [Concomitant]
     Active Substance: GABAPENTIN
  18. GLIMEPIRIDE [Concomitant]
     Active Substance: GLIMEPIRIDE
  19. TRADJENTA [Concomitant]
     Active Substance: LINAGLIPTIN
  20. MOMETASONE [Concomitant]
     Active Substance: MOMETASONE
  21. MUPIROCIN [Concomitant]
     Active Substance: MUPIROCIN
  22. NYSTATIN [Concomitant]
     Active Substance: NYSTATIN
  23. PRAVASTATIN [Concomitant]
     Active Substance: PRAVASTATIN
  24. ONDANSETRON [Concomitant]
     Active Substance: ONDANSETRON
  25. TRIAMCINOLONE [Concomitant]
     Active Substance: TRIAMCINOLONE
  26. BUDESONIDE\FORMOTEROL FUMARATE [Suspect]
     Active Substance: BUDESONIDE\FORMOTEROL FUMARATE

REACTIONS (1)
  - Hip fracture [Unknown]

NARRATIVE: CASE EVENT DATE: 20220201
